FAERS Safety Report 10584420 (Version 1)
Quarter: 2014Q4

REPORT INFORMATION
  Report Type: Spontaneous
  Country: US (occurrence: None)
  Receive Date: 20141113
  Receipt Date: 20141113
  Transmission Date: 20150529
  Serious: No
  Sender: FDA-Public Use
  Company Number: None

PATIENT
  Age: 44 Year
  Sex: Female
  Weight: 75.3 kg

DRUGS (1)
  1. MICONAZOLE [Suspect]
     Active Substance: MICONAZOLE
     Indication: FUNGAL INFECTION
     Dosage: 1 DOSE AT BEDTIME ONE DOSE ONLY. VAGINAL
     Route: 067
     Dates: start: 20141103, end: 20141103

REACTIONS (8)
  - Dysuria [None]
  - Activities of daily living impaired [None]
  - Therapeutic response decreased [None]
  - Burning sensation [None]
  - Chemical injury [None]
  - Pruritus [None]
  - Insomnia [None]
  - Genital swelling [None]

NARRATIVE: CASE EVENT DATE: 20141103
